FAERS Safety Report 18867460 (Version 1)
Quarter: 2021Q1

REPORT INFORMATION
  Report Type: Spontaneous
  Country: CN (occurrence: CN)
  Receive Date: 20210209
  Receipt Date: 20210209
  Transmission Date: 20210420
  Serious: Yes (Other)
  Sender: FDA-Public Use
  Company Number: NVSC2021CN026935

PATIENT
  Age: 78 Year
  Sex: Female

DRUGS (2)
  1. SACUBITRIL,VALSARTAN [Suspect]
     Active Substance: SACUBITRIL\VALSARTAN
     Indication: CARDIAC FAILURE
     Dosage: 50 MG, QD
     Route: 048
     Dates: start: 20200821, end: 20200823
  2. DOPAMINE [Concomitant]
     Active Substance: DOPAMINE HYDROCHLORIDE
     Indication: PRODUCT USED FOR UNKNOWN INDICATION
     Route: 065

REACTIONS (1)
  - Shock [Recovering/Resolving]

NARRATIVE: CASE EVENT DATE: 20200823
